FAERS Safety Report 19727471 (Version 2)
Quarter: 2021Q3

REPORT INFORMATION
  Report Type: Report from Study
  Country: CO (occurrence: CO)
  Receive Date: 20210819
  Receipt Date: 20210828
  Transmission Date: 20211014
  Serious: Yes (Other)
  Sender: FDA-Public Use
  Company Number: NVSC2021CO181087

PATIENT
  Sex: Female

DRUGS (1)
  1. KISQALI [Suspect]
     Active Substance: RIBOCICLIB
     Indication: BREAST CANCER METASTATIC
     Dosage: UNK
     Route: 048

REACTIONS (6)
  - Poisoning [Unknown]
  - Discouragement [Unknown]
  - Rash [Unknown]
  - Drug intolerance [Unknown]
  - Pain [Unknown]
  - Abdominal discomfort [Unknown]
